FAERS Safety Report 8872703 (Version 1)
Quarter: 2012Q4

REPORT INFORMATION
  Report Type: 
  Country: NG (occurrence: NG)
  Receive Date: 20121030
  Receipt Date: 20121030
  Transmission Date: 20130627
  Serious: Yes (Other)
  Sender: FDA-Public Use
  Company Number: NG-COVIDIEN/TYCO HEALTHCARE/MALLINCKRODT-T201203680

PATIENT
  Age: 53 Year
  Sex: Female
  Weight: 165 kg

DRUGS (8)
  1. FENTANYL CITRATE [Suspect]
     Indication: ANAESTHESIA
     Dosage: 25 mcg
  2. BUPIVACAINE [Suspect]
     Indication: ANAESTHESIA
     Dosage: 10 mg, single
  3. DICLOFENAC [Concomitant]
     Indication: ANALGESIC THERAPY
     Dosage: 200 mg suppository
     Route: 054
  4. AMLODIPINE [Concomitant]
     Dosage: 10 mg, UNK
  5. GLIBENCLAMIDE [Concomitant]
     Dosage: 5 mg, bid
  6. METFORMIN [Concomitant]
     Dosage: 1000 mg, tid
  7. ATORVASTAN [Concomitant]
     Dosage: 10 mg, qd
  8. ASPIRIN LOW [Concomitant]
     Dosage: 75 mg, qd

REACTIONS (3)
  - Sleep apnoea syndrome [Unknown]
  - Altered state of consciousness [Recovered/Resolved]
  - Respiratory depression [Recovered/Resolved]
